FAERS Safety Report 15301271 (Version 1)
Quarter: 2018Q3

REPORT INFORMATION
  Report Type: Spontaneous
  Country: GB (occurrence: GB)
  Receive Date: 20180821
  Receipt Date: 20180821
  Transmission Date: 20181010
  Serious: Yes (Other)
  Sender: FDA-Public Use
  Company Number: GB-BECTON DICKINSON-2018BDN00265

PATIENT

DRUGS (3)
  1. CHLORAPREP [Suspect]
     Active Substance: CHLORHEXIDINE GLUCONATE\ISOPROPYL ALCOHOL
     Indication: ANTIBIOTIC PROPHYLAXIS
     Route: 061
  2. IOBAN [Concomitant]
     Route: 061
  3. BETADINE [Concomitant]
     Active Substance: POVIDONE-IODINE
     Route: 061

REACTIONS (4)
  - CSF shunt removal [Unknown]
  - Device related infection [Unknown]
  - Central nervous system infection [Unknown]
  - Wound decomposition [Unknown]
